FAERS Safety Report 5609416-9 (Version None)
Quarter: 2008Q1

REPORT INFORMATION
  Report Type: 
  Country: None (occurrence: None)
  Receive Date: 20080131
  Receipt Date: 20080121
  Transmission Date: 20080703
  Serious: Yes (Hospitalization)
  Sender: FDA-Public Use
  Company Number: AT-ROCHE-526072

PATIENT
  Age: 48 Year
  Sex: Female
  Weight: 85 kg

DRUGS (2)
  1. TAMIFLU [Suspect]
     Indication: DRUG USE FOR UNKNOWN INDICATION
     Dosage: STRENGTH + FORMULATON WAS REPORTED AS ^75 MG^.
     Route: 048
     Dates: start: 20070223, end: 20070304
  2. VOLTAREN [Concomitant]
     Dosage: STRENGTH + FORMULATION WAS REPORTED AS ^100 MG RETARD^.

REACTIONS (3)
  - APHASIA [None]
  - HEMIPARESIS [None]
  - TRANSIENT ISCHAEMIC ATTACK [None]
